FAERS Safety Report 6248047-7 (Version None)
Quarter: 2009Q2

REPORT INFORMATION
  Report Type: 
  Country: None (occurrence: None)
  Receive Date: 20090626
  Receipt Date: 20090621
  Transmission Date: 20091009
  Serious: Yes (Life-Threatening)
  Sender: FDA-Public Use
  Company Number: IN-BAUSCH-2009BL003088

PATIENT
  Age: 8 Year
  Sex: Male
  Weight: 24 kg

DRUGS (8)
  1. PHENYLEPHRINE [Suspect]
     Indication: MYDRIASIS
     Route: 047
     Dates: start: 20090201, end: 20090201
  2. TROPICAMIDE [Suspect]
     Indication: MYDRIASIS
     Route: 047
     Dates: start: 20090201, end: 20090201
  3. MEPERIDINE HCL [Concomitant]
     Indication: CATARACT OPERATION
     Route: 042
  4. PROPOFOL [Concomitant]
     Indication: ANAESTHESIA
     Route: 042
  5. VECURONIUM BROMIDE [Concomitant]
     Indication: ANAESTHESIA
     Route: 042
  6. HALOTHANE [Concomitant]
     Indication: ANAESTHESIA
     Route: 049
  7. OXYGEN [Concomitant]
     Indication: ANAESTHESIA
     Route: 049
  8. NITROUS OXIDE [Concomitant]
     Indication: ANAESTHESIA
     Route: 049

REACTIONS (2)
  - OVERDOSE [None]
  - PULMONARY OEDEMA [None]
